FAERS Safety Report 4477340-3 (Version None)
Quarter: 2004Q4

REPORT INFORMATION
  Report Type: 
  Country: None (occurrence: None)
  Receive Date: 20041014
  Receipt Date: 20041001
  Transmission Date: 20050328
  Serious: Yes (Death)
  Sender: FDA-Public Use
  Company Number: HQWYE543705OCT04

PATIENT
  Age: 19 Year

DRUGS (3)
  1. CORDARONE [Suspect]
     Dosage: ORAL
     Route: 048
  2. OXCARBAZEPINE (OXCARBAZEPINE) [Suspect]
     Dosage: ORAL
     Route: 048
  3. TRAZODONE (TRAZODONE) [Suspect]
     Dosage: ORAL
     Route: 048

REACTIONS (1)
  - COMPLETED SUICIDE [None]
